FAERS Safety Report 17354376 (Version 1)
Quarter: 2020Q1

REPORT INFORMATION
  Report Type: Spontaneous
  Country: US (occurrence: US)
  Receive Date: 20200130
  Receipt Date: 20200130
  Transmission Date: 20200409
  Serious: Yes (Other)
  Sender: FDA-Public Use
  Company Number: None

PATIENT
  Age: 54 Year
  Weight: 73 kg

DRUGS (1)
  1. GABAPENTIN. [Suspect]
     Active Substance: GABAPENTIN
     Indication: NEUROPATHY PERIPHERAL
     Route: 048
     Dates: start: 20200127, end: 20200128

REACTIONS (5)
  - Peripheral swelling [None]
  - Akathisia [None]
  - Emotional distress [None]
  - Dyspnoea [None]
  - Dyskinesia [None]

NARRATIVE: CASE EVENT DATE: 20200128
